FAERS Safety Report 8375199-5 (Version None)
Quarter: 2012Q2

REPORT INFORMATION
  Report Type: 
  Country: None (occurrence: None)
  Receive Date: 20120522
  Receipt Date: 20120518
  Transmission Date: 20120825
  Serious: Yes (Death, Hospitalization)
  Sender: FDA-Public Use
  Company Number: GB-AMGEN-GBRSP2012026904

PATIENT
  Age: 75 Year
  Sex: Female
  Weight: 79 kg

DRUGS (2)
  1. XGEVA [Suspect]
     Indication: METASTASES TO BONE
     Dosage: 120 MG, Q4WK
     Route: 058
     Dates: start: 20120330, end: 20120426
  2. FASLODEX                           /01503001/ [Concomitant]
     Indication: BREAST CANCER
     Dosage: 500 MG, Q4WK
     Route: 030
     Dates: start: 20110201, end: 20120426

REACTIONS (2)
  - METASTASES TO LIVER [None]
  - VOMITING [None]
